FAERS Safety Report 24259649 (Version 2)
Quarter: 2024Q3

REPORT INFORMATION
  Report Type: Spontaneous
  Country: JP (occurrence: JP)
  Receive Date: 20240828
  Receipt Date: 20240927
  Transmission Date: 20241017
  Serious: Yes (Hospitalization)
  Sender: DAIICHI
  Company Number: JP-DAIICHI SANKYO, INC.-DSJ-2023-144012

PATIENT
  Age: 49 Year
  Sex: Female

DRUGS (3)
  1. VANFLYTA [Suspect]
     Active Substance: QUIZARTINIB DIHYDROCHLORIDE
     Indication: Acute myeloid leukaemia
     Dosage: 35.4 MG, QD
     Route: 048
     Dates: start: 20230613, end: 20230825
  2. VANFLYTA [Suspect]
     Active Substance: QUIZARTINIB DIHYDROCHLORIDE
     Dosage: 53 MG, QD
     Route: 048
     Dates: start: 20231124, end: 20240724
  3. VANFLYTA [Suspect]
     Active Substance: QUIZARTINIB DIHYDROCHLORIDE
     Dosage: 26.5 MG, QD
     Route: 048
     Dates: start: 20240822

REACTIONS (3)
  - Graft versus host disease [Recovered/Resolved]
  - Liver disorder [Recovered/Resolved]
  - FLT3 gene mutation [Unknown]

NARRATIVE: CASE EVENT DATE: 20231012
